FAERS Safety Report 4556673-6 (Version None)
Quarter: 2005Q1

REPORT INFORMATION
  Report Type: 
  Country: None (occurrence: None)
  Receive Date: 20050114
  Receipt Date: 20050107
  Transmission Date: 20050727
  Serious: Yes (Other)
  Sender: FDA-Public Use
  Company Number: 2003148448US

PATIENT
  Age: 60 Year
  Sex: Female
  Weight: 58.96 kg

DRUGS (5)
  1. BEXTRA [Suspect]
     Indication: POST PROCEDURAL PAIN
     Dosage: 20 MG (20 MG, QD), ORAL
     Route: 048
     Dates: start: 20030126, end: 20030202
  2. CONJUGATED ESTROGENS [Concomitant]
  3. HYZAAR [Concomitant]
  4. THYROID TAB [Concomitant]
  5. OLOPATADINE HYDROCHLORIDE (OLOPATADINE HYDROCHLORIDE) [Concomitant]

REACTIONS (8)
  - APHONIA [None]
  - DERMATITIS EXFOLIATIVE [None]
  - DISCOMFORT [None]
  - DRUG ERUPTION [None]
  - DRUG HYPERSENSITIVITY [None]
  - DRY SKIN [None]
  - DYSURIA [None]
  - INSOMNIA [None]
